FAERS Safety Report 5807928-6 (Version None)
Quarter: 2008Q3

REPORT INFORMATION
  Report Type: 
  Country: None (occurrence: None)
  Receive Date: 20080711
  Receipt Date: 20080630
  Transmission Date: 20090109
  Serious: Yes (Other)
  Sender: FDA-Public Use
  Company Number: FR-PFIZER INC-2008055484

PATIENT
  Sex: Female
  Weight: 60 kg

DRUGS (7)
  1. SALAZOPYRINE [Suspect]
     Indication: RHEUMATOID ARTHRITIS
     Route: 048
  2. MABTHERA [Interacting]
     Indication: RHEUMATOID ARTHRITIS
     Dosage: DAILY DOSE:1GRAM
     Route: 042
     Dates: start: 20071025, end: 20071108
  3. ARAVA [Interacting]
  4. DOLIPRANE [Concomitant]
     Dosage: TEXT:500
     Route: 048
  5. ACTONEL [Concomitant]
     Indication: OSTEOPOROSIS
  6. FENOFIBRATE [Concomitant]
     Indication: HYPERCHOLESTEROLAEMIA
     Route: 048
  7. LASIX [Concomitant]
     Indication: HYPERTENSION
     Route: 048

REACTIONS (3)
  - DRUG INTERACTION [None]
  - LEUKOPENIA [None]
  - NEUTROPENIA [None]
